FAERS Safety Report 9658712 (Version 2)
Quarter: 2013Q4

REPORT INFORMATION
  Report Type: Spontaneous
  Country: US (occurrence: US)
  Receive Date: 20131030
  Receipt Date: 20131030
  Transmission Date: 20140711
  Serious: No
  Sender: FDA-Public Use
  Company Number: US-PURDUE-USA-2010-0051268

PATIENT
  Sex: Male
  Weight: 86.17 kg

DRUGS (5)
  1. OXYCONTIN (NDA 22-272) [Suspect]
     Indication: PAIN
     Dosage: 320 MG, QD
  2. OXYCONTIN (NDA 22-272) [Suspect]
     Indication: BACK PAIN
  3. OXYCODONE HCL LIQUID [Concomitant]
     Indication: BREAKTHROUGH PAIN
     Dosage: 10 MG, 2-3 QD
  4. MORPHINE SULFATE (SIMILAR TO NDA 19-516) [Concomitant]
  5. FENTANYL [Concomitant]

REACTIONS (6)
  - Drug withdrawal syndrome [Unknown]
  - Malabsorption [Unknown]
  - Drug level decreased [Unknown]
  - Pain [Unknown]
  - Drug effect decreased [Unknown]
  - Product solubility abnormal [Unknown]
